FAERS Safety Report 8468137-8 (Version None)
Quarter: 2012Q2

REPORT INFORMATION
  Report Type: 
  Country: None (occurrence: None)
  Receive Date: 20120626
  Receipt Date: 20120618
  Transmission Date: 20120825
  Serious: Yes (Hospitalization)
  Sender: FDA-Public Use
  Company Number: FR-ROCHE-1079277

PATIENT
  Age: 67 Year
  Sex: Female
  Weight: 51 kg

DRUGS (2)
  1. TEMODAL [Suspect]
     Indication: PANCREATIC NEOPLASM
     Route: 048
     Dates: start: 20120430, end: 20120503
  2. XELODA [Suspect]
     Indication: PANCREATIC NEOPLASM
     Route: 048
     Dates: start: 20120420, end: 20120521

REACTIONS (3)
  - PURPURA [None]
  - THROMBOCYTOPENIA [None]
  - NEUTROPENIA [None]
